FAERS Safety Report 14878698 (Version 1)
Quarter: 2018Q2

REPORT INFORMATION
  Report Type: Spontaneous
  Country: BR (occurrence: BR)
  Receive Date: 20180511
  Receipt Date: 20180511
  Transmission Date: 20180711
  Serious: Yes (Death, Other)
  Sender: FDA-Public Use
  Company Number: BR-SUN PHARMACEUTICAL INDUSTRIES LTD-2018RR-172427

PATIENT
  Sex: Male
  Weight: 1.79 kg

DRUGS (2)
  1. DIGOXIN. [Suspect]
     Active Substance: DIGOXIN
     Indication: FOETAL TACHYARRHYTHMIA
     Dosage: UNK
     Route: 064
  2. AMIODARONE [Suspect]
     Active Substance: AMIODARONE
     Indication: FOETAL TACHYARRHYTHMIA
     Dosage: UNK
     Route: 064

REACTIONS (3)
  - Foetal exposure during pregnancy [Unknown]
  - Foetal death [Fatal]
  - Drug ineffective [Unknown]
